FAERS Safety Report 4877594-5 (Version None)
Quarter: 2006Q1

REPORT INFORMATION
  Report Type: 
  Country: None (occurrence: None)
  Receive Date: 20060109
  Receipt Date: 20051224
  Transmission Date: 20060701
  Serious: No
  Sender: FDA-Public Use
  Company Number: 200601IM000001

PATIENT
  Sex: Female

DRUGS (2)
  1. INFERGEN [Suspect]
     Indication: HEPATITIS C
     Dosage: 15 UG, QD, SUBCUTANEOUS
     Route: 058
     Dates: start: 20051028
  2. RIBAVIRIN [Concomitant]

REACTIONS (9)
  - ASTHENIA [None]
  - ASTHMA [None]
  - BLOOD GLUCOSE INCREASED [None]
  - CONSTIPATION [None]
  - ORTHOSTATIC HYPOTENSION [None]
  - POLYDIPSIA [None]
  - POLYURIA [None]
  - TREATMENT NONCOMPLIANCE [None]
  - WEIGHT DECREASED [None]
